FAERS Safety Report 24453508 (Version 2)
Quarter: 2024Q4

REPORT INFORMATION
  Report Type: Report from Study
  Country: SE (occurrence: SE)
  Receive Date: 20241017
  Receipt Date: 20241018
  Transmission Date: 20250115
  Serious: No
  Sender: ROCHE
  Company Number: SE-ROCHE-3182403

PATIENT

DRUGS (1)
  1. RITUXIMAB [Interacting]
     Active Substance: RITUXIMAB
     Indication: Rheumatic disorder
     Route: 042

REACTIONS (2)
  - Vaccination failure [Unknown]
  - Vaccine interaction [Unknown]
